FAERS Safety Report 23658093 (Version 1)
Quarter: 2024Q1

REPORT INFORMATION
  Report Type: Spontaneous
  Country: US (occurrence: US)
  Receive Date: 20240321
  Receipt Date: 20240321
  Transmission Date: 20240410
  Serious: No
  Sender: FDA-Public Use
  Company Number: US-PFIZER INC-202400059911

PATIENT
  Age: 47 Year
  Sex: Male
  Weight: 95.25 kg

DRUGS (1)
  1. GENOTROPIN [Suspect]
     Active Substance: SOMATROPIN
     Indication: Growth hormone deficiency
     Dosage: ONCE EVERY DAY AT NIGHT, AT NIGHTTIME

REACTIONS (1)
  - Needle issue [Unknown]
